FAERS Safety Report 5469894-5 (Version None)
Quarter: 2007Q3

REPORT INFORMATION
  Report Type: 
  Country: None (occurrence: None)
  Receive Date: 20070927
  Receipt Date: 20070921
  Transmission Date: 20080115
  Serious: Yes (Other)
  Sender: FDA-Public Use
  Company Number: US-SHR-US-2007-036130

PATIENT
  Age: 41 Year
  Sex: Female
  Weight: 99.8 kg

DRUGS (3)
  1. MIRENA [Suspect]
     Indication: CONTRACEPTION
     Dosage: 20 A?G/DAY, CONT
     Route: 015
     Dates: start: 20070317, end: 20070919
  2. DIOVAN HCT [Concomitant]
     Dosage: UNK, 1X/DAY
  3. NORVASC [Concomitant]
     Dosage: 10 MG, 1X/DAY

REACTIONS (2)
  - BREAST CANCER [None]
  - GENITAL HAEMORRHAGE [None]
